FAERS Safety Report 4452123-9 (Version None)
Quarter: 2004Q3

REPORT INFORMATION
  Report Type: 
  Country: None (occurrence: None)
  Receive Date: 20040915
  Receipt Date: 20040915
  Transmission Date: 20050211
  Serious: Yes (Other)
  Sender: FDA-Public Use
  Company Number: None

PATIENT
  Age: 52 Year
  Sex: Female
  Weight: 90.7194 kg

DRUGS (3)
  1. CYMBALTA [Suspect]
     Indication: POST-TRAUMATIC STRESS DISORDER
     Dosage: 60 MG BY MOUTH X 1 DOSE 1 DOSE AT NOON, 09/04/04
     Route: 048
     Dates: start: 20040904
  2. SKELAXIN [Concomitant]
  3. DARVOCET [Concomitant]

REACTIONS (18)
  - ASTHENIA [None]
  - CHEST PAIN [None]
  - DIZZINESS [None]
  - DRY MOUTH [None]
  - FATIGUE [None]
  - FEELING COLD [None]
  - HAEMATEMESIS [None]
  - HYPERAESTHESIA [None]
  - HYPERHIDROSIS [None]
  - LOOSE STOOLS [None]
  - LYMPHADENOPATHY [None]
  - NAUSEA [None]
  - PRURITUS [None]
  - PYREXIA [None]
  - RENAL PAIN [None]
  - SOMNOLENCE [None]
  - VISION BLURRED [None]
  - VOMITING [None]
